FAERS Safety Report 8061064-X (Version None)
Quarter: 2012Q1

REPORT INFORMATION
  Report Type: 
  Country: None (occurrence: None)
  Receive Date: 20120120
  Receipt Date: 20110526
  Transmission Date: 20120608
  Serious: No
  Sender: FDA-Public Use
  Company Number: US-ALLERGAN-1107241US

PATIENT
  Sex: Female

DRUGS (1)
  1. RESTASIS [Suspect]
     Indication: DRY EYE
     Dosage: UNK
     Route: 047
     Dates: start: 20110501

REACTIONS (4)
  - EYE PAIN [None]
  - LACRIMATION INCREASED [None]
  - NASAL CONGESTION [None]
  - INCORRECT DOSE ADMINISTERED [None]
